FAERS Safety Report 16606761 (Version 3)
Quarter: 2019Q3

REPORT INFORMATION
  Report Type: Spontaneous
  Country: BO (occurrence: BO)
  Receive Date: 20190722
  Receipt Date: 20190906
  Transmission Date: 20191004
  Serious: Yes (Death, Other)
  Sender: FDA-Public Use
  Company Number: BO-ROCHE-2359536

PATIENT
  Age: 64 Year
  Sex: Female

DRUGS (1)
  1. TECENTRIQ [Suspect]
     Active Substance: ATEZOLIZUMAB
     Indication: OVARIAN CANCER
     Route: 042
     Dates: start: 20180624

REACTIONS (4)
  - Intentional product use issue [Unknown]
  - Off label use [Unknown]
  - Cardiac failure [Fatal]
  - Performance status decreased [Unknown]

NARRATIVE: CASE EVENT DATE: 20190711
